FAERS Safety Report 5360835-8 (Version None)
Quarter: 2007Q2

REPORT INFORMATION
  Report Type: 
  Country: None (occurrence: None)
  Receive Date: 20070530
  Receipt Date: 20070326
  Transmission Date: 20071010
  Serious: No
  Sender: FDA-Public Use
  Company Number: 2007PV032442

PATIENT
  Age: 55 Year
  Sex: Male

DRUGS (21)
  1. BYETTA [Suspect]
     Indication: DIABETES MELLITUS NON-INSULIN-DEPENDENT
     Dosage: 5 MCG;BID;SC
     Route: 058
     Dates: start: 20060101, end: 20060101
  2. BYETTA [Suspect]
     Indication: DIABETES MELLITUS NON-INSULIN-DEPENDENT
     Dosage: 5 MCG;BID;SC
     Route: 058
     Dates: start: 20060101, end: 20060101
  3. BYETTA [Suspect]
     Indication: DIABETES MELLITUS NON-INSULIN-DEPENDENT
     Dosage: 5 MCG;BID;SC
     Route: 058
     Dates: start: 20070101, end: 20070317
  4. GLUCOPHAGE XR [Concomitant]
  5. NAPROXEN [Concomitant]
  6. PRILEPTAL [Concomitant]
  7. BUPROPION HCL [Concomitant]
  8. NEURONTIN [Concomitant]
  9. METHADONE HCL [Concomitant]
  10. LIRIPA [Concomitant]
  11. AMBIEN [Concomitant]
  12. OPTIVAR [Concomitant]
  13. NASONEX [Concomitant]
  14. ALLEGRA [Concomitant]
  15. CARTIA XT [Concomitant]
  16. DIOVAN HCT [Concomitant]
  17. TOPROL-XL [Concomitant]
  18. SIMVASTATIN [Concomitant]
  19. ALLOPURINOL [Concomitant]
  20. UROXATRAL [Concomitant]
  21. ASPIRIN [Concomitant]

REACTIONS (3)
  - HEADACHE [None]
  - HYPERTENSION [None]
  - NAUSEA [None]
